FAERS Safety Report 18495289 (Version 1)
Quarter: 2020Q4

REPORT INFORMATION
  Report Type: Report from Study
  Country: ZA (occurrence: ZA)
  Receive Date: 20201112
  Receipt Date: 20201112
  Transmission Date: 20210114
  Serious: Yes (Death)
  Sender: FDA-Public Use
  Company Number: ZA-REGENERON PHARMACEUTICALS, INC.-2020-88024

PATIENT

DRUGS (1)
  1. EYLEA [Suspect]
     Active Substance: AFLIBERCEPT
     Indication: PRODUCT USED FOR UNKNOWN INDICATION
     Dosage: 1X VAIL; TOTAL NUMBER OF DOSES UNK; LAST DOSE PRIOR TO EVENT UNK
     Route: 031
     Dates: start: 20200126

REACTIONS (1)
  - Death [Fatal]
